FAERS Safety Report 9980431 (Version 1)
Quarter: 2014Q1

REPORT INFORMATION
  Report Type: Spontaneous
  Country: DE (occurrence: DE)
  Receive Date: 20140307
  Receipt Date: 20140307
  Transmission Date: 20141002
  Serious: Yes (Other)
  Sender: FDA-Public Use
  Company Number: DE-RANBAXY-2014R1-78638

PATIENT
  Age: 37 Year
  Sex: Female
  Weight: 55 kg

DRUGS (4)
  1. ISOTRETINOIN [Suspect]
     Indication: ACNE
     Dosage: 10 MG, 2/WEEK
     Route: 048
     Dates: start: 20121112, end: 20121126
  2. CIPRALEX [Suspect]
     Indication: DEPRESSION
     Dosage: 10 MG, QD
     Route: 048
     Dates: start: 20121221, end: 20121228
  3. CYMBALTA [Concomitant]
     Indication: DEPRESSION
     Dosage: UNK
     Route: 048
     Dates: start: 20121112, end: 20121218
  4. GIPPEIMPFSTOFF [Concomitant]
     Indication: IMMUNISATION
     Dosage: UNK
     Route: 030
     Dates: start: 20121213, end: 20121213

REACTIONS (1)
  - Abortion spontaneous [Recovered/Resolved]
